FAERS Safety Report 7297644-9 (Version None)
Quarter: 2011Q1

REPORT INFORMATION
  Report Type: 
  Country: None (occurrence: None)
  Receive Date: 20110216
  Receipt Date: 20110208
  Transmission Date: 20110831
  Serious: Yes (Hospitalization)
  Sender: FDA-Public Use
  Company Number: US-GILEAD-2011-0035859

PATIENT
  Sex: Male

DRUGS (4)
  1. PROGRAF [Concomitant]
  2. PREDNISONE [Concomitant]
  3. LETAIRIS [Suspect]
     Indication: PRODUCT USED FOR UNKNOWN INDICATION
     Route: 048
     Dates: start: 20080601
  4. DEMADEX [Concomitant]

REACTIONS (5)
  - CARDIAC FAILURE CONGESTIVE [None]
  - PULMONARY HYPERTENSION [None]
  - RENAL FAILURE ACUTE [None]
  - FLUID RETENTION [None]
  - CELLULITIS [None]
